FAERS Safety Report 20683738 (Version 1)
Quarter: 2022Q2

REPORT INFORMATION
  Report Type: Spontaneous
  Country: CA (occurrence: CA)
  Receive Date: 20220407
  Receipt Date: 20220407
  Transmission Date: 20220720
  Serious: Yes (Other)
  Sender: FDA-Public Use
  Company Number: None

PATIENT
  Age: 63 Year
  Sex: Male

DRUGS (14)
  1. POSACONAZOLE [Suspect]
     Active Substance: POSACONAZOLE
     Indication: Keratitis
     Dosage: DOSAGE FORM NOT SPECIFIED
     Route: 048
  2. POSACONAZOLE [Suspect]
     Active Substance: POSACONAZOLE
     Indication: Fungal infection
  3. CASPOFUNGIN [Suspect]
     Active Substance: CASPOFUNGIN
     Indication: Keratitis
     Dosage: UNK
     Route: 065
  4. CASPOFUNGIN [Suspect]
     Active Substance: CASPOFUNGIN
     Indication: Fungal infection
  5. NATAMYCIN [Suspect]
     Active Substance: NATAMYCIN
     Indication: Keratitis
     Dosage: UNK
     Route: 065
  6. NATAMYCIN [Suspect]
     Active Substance: NATAMYCIN
     Indication: Fungal infection
  7. VORICONAZOLE [Suspect]
     Active Substance: VORICONAZOLE
     Indication: Antifungal prophylaxis
     Dosage: EVERY 1 HOUR
     Route: 061
  8. VORICONAZOLE [Suspect]
     Active Substance: VORICONAZOLE
     Dosage: 200 MILLIGRAM, 2 EVERY 1 DAYS, DOSAGE FORM NOT SPECIFIED
     Route: 048
  9. AMPHOTERICIN B [Concomitant]
     Active Substance: AMPHOTERICIN B
     Indication: Antifungal prophylaxis
     Dosage: THERAPY DURATION: 0.0, EVERY 1 HOURS
     Route: 061
  10. BIMATOPROST [Concomitant]
     Active Substance: BIMATOPROST
     Indication: Ocular hypertension
     Dosage: DOSAGE FORM NOT SPECIFIED
     Route: 061
  11. CYCLOPENTOLATE [Concomitant]
     Active Substance: CYCLOPENTOLATE
     Indication: Drug therapy
     Dosage: UNK
     Route: 061
  12. METHAZOLAMIDE [Concomitant]
     Active Substance: METHAZOLAMIDE
     Indication: Ocular hypertension
     Dosage: 50 MILLIGRAM, 3 EVERY 1 DAYS
     Route: 048
  13. MOXIFLOXACIN [Concomitant]
     Active Substance: MOXIFLOXACIN
     Indication: Antibiotic therapy
     Dosage: DOSAGE FORM NOT SPECIFIED
     Route: 061
  14. BRIMONIDINE TARTRATE;TIMOLOL [Concomitant]
     Indication: Ocular hypertension
     Dosage: UNK
     Route: 061

REACTIONS (2)
  - Drug ineffective [Unknown]
  - Hepatotoxicity [Unknown]
